FAERS Safety Report 7487183-4 (Version None)
Quarter: 2011Q2

REPORT INFORMATION
  Report Type: 
  Country: None (occurrence: None)
  Receive Date: 20110518
  Receipt Date: 20110419
  Transmission Date: 20111010
  Serious: Yes (Other)
  Sender: FDA-Public Use
  Company Number: US-BAYER-201033511NA

PATIENT
  Age: 24 Year
  Sex: Female
  Weight: 63 kg

DRUGS (2)
  1. YAZ [Suspect]
     Indication: CONTRACEPTION
     Dates: start: 20091001, end: 20100101
  2. YASMIN [Suspect]
     Indication: CONTRACEPTION
     Dates: start: 20090701, end: 20090901

REACTIONS (6)
  - CHOLECYSTITIS CHRONIC [None]
  - ABDOMINAL PAIN [None]
  - CHOLESTEROSIS [None]
  - RENAL PAIN [None]
  - URINARY TRACT INFECTION [None]
  - CHOLELITHIASIS [None]
